FAERS Safety Report 8823964 (Version 2)
Quarter: 2012Q4

REPORT INFORMATION
  Report Type: 
  Country: NL (occurrence: NL)
  Receive Date: 20121003
  Receipt Date: 20121211
  Transmission Date: 20130627
  Serious: Yes (Hospitalization, Other)
  Sender: FDA-Public Use
  Company Number: NL-PFIZER INC-2012241363

PATIENT
  Age: 78 Year
  Sex: Male
  Weight: 81.3 kg

DRUGS (20)
  1. GENOTROPIN [Suspect]
     Indication: HYPOPITUITARISM
     Dosage: UNK
     Dates: start: 1994
  2. GENOTROPIN [Suspect]
     Dosage: 0.2 mg, 1x/day, 7 injections/week
     Route: 058
     Dates: start: 20031101, end: 20050629
  3. HYDROCORTISONE [Concomitant]
     Indication: ACTH DECREASED
     Dosage: 3 times a day (10-5-5mg)
     Dates: start: 19731215
  4. LEVOTHYROXINE [Concomitant]
     Indication: THYROID DISORDER
     Dosage: 0.1 mg, 1x/day
     Dates: start: 19731215
  5. LEVOTHYROXINE [Concomitant]
     Indication: PRIMARY HYPOTHYROIDISM
  6. ASCAL [Concomitant]
     Indication: ANGINA PECTORIS
     Dosage: 100 mg, 1x/day
     Dates: start: 19921215
  7. ADALAT [Concomitant]
     Indication: ANGINA PECTORIS
     Dosage: 15 mg, 1x/day
     Dates: start: 19930215
  8. NITROLINGUAL [Concomitant]
     Indication: ANGINA PECTORIS
     Dosage: UNK
     Dates: start: 19960123
  9. FOSAMAX [Concomitant]
     Indication: OSTEOPOROSIS
     Dosage: UNK
     Dates: start: 19981207
  10. CO-TRIMOXAZOLE [Concomitant]
     Indication: PROSTATITIS
     Dosage: UNK
     Dates: start: 19990301
  11. TARIVID ORAL [Concomitant]
     Indication: PROSTATITIS
     Dosage: UNK
     Dates: start: 19990301
  12. ANDROGEL [Concomitant]
     Indication: LUTEINISING HORMONE DEFICIENCY
     Dosage: UNK
     Dates: start: 20040630
  13. ANDROGEL [Concomitant]
     Indication: FOLLICLE-STIMULATING HORMONE DEFICIENCY
  14. ANDROGEL [Concomitant]
     Indication: TESTICULAR HYPOGONADISM
  15. COVERSYL [Concomitant]
     Dosage: 14 mg, 1x/day
  16. PANTOPRAZOL [Concomitant]
     Dosage: 40 mg, 1x/day
  17. OMNIC [Concomitant]
     Dosage: 0.4 mg, 1x/day
  18. DHEA [Concomitant]
     Dosage: 50 mg, 1x/day
  19. ALDACTONE [Concomitant]
     Dosage: 25 mg, 1x/day
  20. PROMOCARD [Concomitant]
     Dosage: 50 mg, 1x/day

REACTIONS (1)
  - Myocardial infarction [Recovered/Resolved with Sequelae]
